FAERS Safety Report 5794146-3 (Version None)
Quarter: 2008Q2

REPORT INFORMATION
  Report Type: 
  Country: None (occurrence: None)
  Receive Date: 20080627
  Receipt Date: 20080619
  Transmission Date: 20081010
  Serious: Yes (Hospitalization)
  Sender: FDA-Public Use
  Company Number: US-MERCK-0806USA07789

PATIENT
  Sex: Female

DRUGS (1)
  1. COZAAR [Suspect]
     Indication: BLOOD PRESSURE
     Route: 048

REACTIONS (3)
  - ADVERSE EVENT [None]
  - HAEMOLYTIC ANAEMIA [None]
  - RASH [None]
